FAERS Safety Report 14930773 (Version 1)
Quarter: 2018Q2

REPORT INFORMATION
  Report Type: Spontaneous
  Country: FR (occurrence: FR)
  Receive Date: 20180523
  Receipt Date: 20180523
  Transmission Date: 20180711
  Serious: Yes (Other)
  Sender: FDA-Public Use
  Company Number: FR-MERCK KGAA-2048347

PATIENT
  Age: 53 Year
  Sex: Female
  Weight: 85 kg

DRUGS (1)
  1. NOVOTHYROX [Suspect]
     Active Substance: LEVOTHYROXINE SODIUM
     Indication: PRODUCT USED FOR UNKNOWN INDICATION

REACTIONS (22)
  - Fatigue [None]
  - Myalgia [None]
  - Blood folate decreased [None]
  - Depression [None]
  - Insomnia [None]
  - Tremor [None]
  - Weight increased [None]
  - Headache [None]
  - Diarrhoea haemorrhagic [Not Recovered/Not Resolved]
  - Blood pressure increased [None]
  - Memory impairment [None]
  - Irritability [None]
  - Blood thyroid stimulating hormone decreased [None]
  - Visual impairment [None]
  - Dysstasia [None]
  - Restlessness [None]
  - Muscle spasms [None]
  - Dizziness [None]
  - C-reactive protein increased [None]
  - Constipation [None]
  - Hot flush [None]
  - Anxiety [None]

NARRATIVE: CASE EVENT DATE: 201703
